FAERS Safety Report 4741558-2 (Version None)
Quarter: 2005Q3

REPORT INFORMATION
  Report Type: 
  Country: None (occurrence: None)
  Receive Date: 20050810
  Receipt Date: 20030509
  Transmission Date: 20060218
  Serious: Yes (Other)
  Sender: FDA-Public Use
  Company Number: US-ABBOTT-03P-163-0218943-00

PATIENT
  Sex: Female

DRUGS (7)
  1. TRICOR [Suspect]
     Indication: BLOOD CHOLESTEROL ABNORMAL
     Route: 048
     Dates: start: 20020307, end: 20020401
  2. PROTONIX [Suspect]
     Indication: GASTROOESOPHAGEAL REFLUX DISEASE
     Route: 048
     Dates: start: 20010914, end: 20020405
  3. METFORMIN HCL [Suspect]
     Indication: DIABETES MELLITUS
     Route: 048
     Dates: start: 20010914
  4. MINOCYCLINE [Suspect]
     Indication: DRUG USE FOR UNKNOWN INDICATION
     Dates: end: 20020405
  5. GEMFIBROZIL [Concomitant]
     Indication: DRUG USE FOR UNKNOWN INDICATION
     Route: 048
     Dates: start: 20010914, end: 20020501
  6. GEMFIBROZIL [Concomitant]
     Dates: start: 20021001
  7. ASPIRIN [Concomitant]
     Indication: DRUG USE FOR UNKNOWN INDICATION
     Route: 048
     Dates: start: 20010914, end: 20020914

REACTIONS (17)
  - ACNE [None]
  - ARTHRALGIA [None]
  - ASTHENIA [None]
  - BLOOD ALBUMIN DECREASED [None]
  - CONDITION AGGRAVATED [None]
  - DRUG ERUPTION [None]
  - ERYTHEMA [None]
  - HEADACHE [None]
  - HEPATIC LESION [None]
  - HEPATIC STEATOSIS [None]
  - HEPATOCELLULAR DAMAGE [None]
  - LICHEN PLANUS [None]
  - MYALGIA [None]
  - PAIN [None]
  - SCAR [None]
  - SUNBURN [None]
  - UPPER RESPIRATORY TRACT INFECTION [None]
